FAERS Safety Report 6504738-1 (Version None)
Quarter: 2009Q4

REPORT INFORMATION
  Report Type: 
  Country: None (occurrence: None)
  Receive Date: 20091215
  Receipt Date: 20091201
  Transmission Date: 20100525
  Serious: Yes (Other)
  Sender: FDA-Public Use
  Company Number: 232273K08USA

PATIENT
  Age: 58 Year
  Sex: Male

DRUGS (1)
  1. REBIF [Suspect]
     Indication: MULTIPLE SCLEROSIS
     Dosage: 44 MCG, 3 IN 1 WEEKS, SUBCUTANEOUS
     Route: 058
     Dates: start: 20070416, end: 20090601

REACTIONS (5)
  - FURUNCLE [None]
  - IMMUNE SYSTEM DISORDER [None]
  - INFECTION [None]
  - METASTASES TO EYE [None]
  - SQUAMOUS CELL CARCINOMA OF SKIN [None]
